FAERS Safety Report 24036762 (Version 1)
Quarter: 2024Q3

REPORT INFORMATION
  Report Type: Spontaneous
  Country: CH (occurrence: CH)
  Receive Date: 20240701
  Receipt Date: 20240701
  Transmission Date: 20241016
  Serious: Yes (Hospitalization, Other)
  Sender: BRISTOL MYERS SQUIBB
  Company Number: CH-BRISTOL-MYERS SQUIBB COMPANY-2024-104671

PATIENT
  Sex: Male

DRUGS (3)
  1. NIVOLUMAB [Suspect]
     Active Substance: NIVOLUMAB
     Indication: Renal cancer
     Dosage: 4 CYCLES
     Route: 042
     Dates: start: 20230727, end: 20230928
  2. NIVOLUMAB [Suspect]
     Active Substance: NIVOLUMAB
     Dosage: MAINTENANCE
     Route: 042
     Dates: start: 20231207
  3. IPILIMUMAB [Suspect]
     Active Substance: IPILIMUMAB
     Indication: Renal cancer
     Dosage: 4 CYCLES
     Route: 042
     Dates: start: 20230727, end: 20230928

REACTIONS (4)
  - Malignant neoplasm progression [Unknown]
  - Immune-mediated hypophysitis [Unknown]
  - Secondary adrenocortical insufficiency [Unknown]
  - Hypertension [Unknown]

NARRATIVE: CASE EVENT DATE: 20231016
